FAERS Safety Report 7780911-X (Version None)
Quarter: 2011Q3

REPORT INFORMATION
  Report Type: 
  Country: None (occurrence: None)
  Receive Date: 20110923
  Receipt Date: 20110909
  Transmission Date: 20111222
  Serious: Yes (Life-Threatening, Other)
  Sender: FDA-Public Use
  Company Number: TUK2011A00143

PATIENT
  Age: 73 Year
  Sex: Male

DRUGS (5)
  1. METFORMIN HCL [Concomitant]
  2. RAMIPRIL [Concomitant]
  3. ACTOS [Suspect]
     Indication: TYPE 2 DIABETES MELLITUS
     Dosage: 30 MG (30 MG, 1 IN 1 D) (45 MG)
     Route: 048
     Dates: start: 20020930, end: 20040101
  4. ACTOS [Suspect]
     Indication: TYPE 2 DIABETES MELLITUS
     Dosage: 30 MG (30 MG, 1 IN 1 D) (45 MG)
     Route: 048
     Dates: start: 20040101, end: 20110830
  5. ASPRIN (ACETYLSALICYLIC ACID) [Concomitant]

REACTIONS (1)
  - BLADDER TRANSITIONAL CELL CARCINOMA [None]
